FAERS Safety Report 6771408-4 (Version None)
Quarter: 2010Q2

REPORT INFORMATION
  Report Type: 
  Country: None (occurrence: None)
  Receive Date: 20100616
  Receipt Date: 20100608
  Transmission Date: 20101027
  Serious: Yes (Death, Hospitalization)
  Sender: FDA-Public Use
  Company Number: US-AMGEN-KDC416880

PATIENT
  Age: 62 Year
  Sex: Male
  Weight: 95 kg

DRUGS (3)
  1. PANITUMUMAB [Suspect]
     Indication: PANCREATIC CARCINOMA
     Dates: start: 20100519, end: 20100519
  2. GEMCITABINE HCL [Concomitant]
     Dates: start: 20100519, end: 20100519
  3. TARCEVA [Concomitant]
     Dates: start: 20100519, end: 20100521

REACTIONS (1)
  - GASTRIC HAEMORRHAGE [None]
